FAERS Safety Report 7711248-2 (Version None)
Quarter: 2011Q3

REPORT INFORMATION
  Report Type: 
  Country: None (occurrence: None)
  Receive Date: 20110826
  Receipt Date: 20110818
  Transmission Date: 20111222
  Serious: No
  Sender: FDA-Public Use
  Company Number: US-BIOGENIDEC-2011BI031938

PATIENT
  Sex: Female

DRUGS (1)
  1. AVONEX [Suspect]
     Indication: MULTIPLE SCLEROSIS
     Route: 030
     Dates: start: 20110228

REACTIONS (8)
  - DISTURBANCE IN ATTENTION [None]
  - FIBROMYALGIA [None]
  - MIGRAINE [None]
  - ATTENTION DEFICIT/HYPERACTIVITY DISORDER [None]
  - FATIGUE [None]
  - FEELING OF BODY TEMPERATURE CHANGE [None]
  - ENDOMETRITIS [None]
  - MEMORY IMPAIRMENT [None]
